FAERS Safety Report 15092685 (Version 1)
Quarter: 2018Q3

REPORT INFORMATION
  Report Type: Spontaneous
  Country: ZA (occurrence: ZA)
  Receive Date: 20180629
  Receipt Date: 20180629
  Transmission Date: 20181010
  Serious: Yes (Death)
  Sender: FDA-Public Use
  Company Number: ZA-DRREDDYS-SAF/SAF/18/0101633

PATIENT
  Age: 54 Year
  Sex: Female

DRUGS (10)
  1. EPILIM [Suspect]
     Active Substance: VALPROATE SODIUM
     Indication: EPILEPSY
     Route: 048
     Dates: start: 201712, end: 201806
  2. TREPILINE [Suspect]
     Active Substance: AMITRIPTYLINE
     Indication: DEPRESSION
     Route: 048
     Dates: start: 201712, end: 201806
  3. DOPAQUEL [Suspect]
     Active Substance: QUETIAPINE
     Indication: MENTAL DISORDER
     Route: 048
     Dates: start: 201712, end: 201806
  4. TAREG [Suspect]
     Active Substance: VALSARTAN
     Indication: HYPERTENSION
     Route: 048
     Dates: start: 201712, end: 201806
  5. VALDOXANE [Suspect]
     Active Substance: AGOMELATINE
     Indication: MENTAL DISORDER
     Route: 048
     Dates: start: 201712, end: 201806
  6. RIVOTRIL [Suspect]
     Active Substance: CLONAZEPAM
     Indication: EPILEPSY
     Route: 048
     Dates: start: 201712, end: 201806
  7. AMLOC (AMLODIPINE MALEATE) [Suspect]
     Active Substance: AMLODIPINE MALEATE
     Indication: HYPERTENSION
     Route: 048
     Dates: start: 201712, end: 201806
  8. ELTROXIN [Suspect]
     Active Substance: LEVOTHYROXINE
     Indication: HYPOTHYROIDISM
     Route: 048
     Dates: start: 201712, end: 201806
  9. ESTRO?PAUSE [Suspect]
     Active Substance: ESTRADIOL VALERATE
     Indication: HORMONE REPLACEMENT THERAPY
     Route: 048
     Dates: start: 201712, end: 201806
  10. ZOPIVANE [Suspect]
     Active Substance: ZOPICLONE
     Indication: SLEEP DISORDER
     Route: 048
     Dates: start: 201712, end: 201806

REACTIONS (1)
  - Death [Fatal]

NARRATIVE: CASE EVENT DATE: 20180609
